FAERS Safety Report 4850989-1 (Version None)
Quarter: 2005Q4

REPORT INFORMATION
  Report Type: 
  Country: None (occurrence: None)
  Receive Date: 20051212
  Receipt Date: 20041117
  Transmission Date: 20060501
  Serious: Yes (Hospitalization)
  Sender: FDA-Public Use
  Company Number: US-MERCK-0411USA03032

PATIENT
  Age: 81 Year
  Sex: Female
  Weight: 87 kg

DRUGS (2)
  1. VIOXX [Suspect]
     Route: 048
     Dates: start: 20030101, end: 20040101
  2. ALEVE [Concomitant]
     Route: 065

REACTIONS (3)
  - CARDIAC DISORDER [None]
  - COLLAPSE OF LUNG [None]
  - MYOCARDIAL INFARCTION [None]
